FAERS Safety Report 24773436 (Version 1)
Quarter: 2024Q4

REPORT INFORMATION
  Report Type: Spontaneous
  Country: US (occurrence: US)
  Receive Date: 20241225
  Receipt Date: 20241225
  Transmission Date: 20250114
  Serious: Yes (Life-Threatening, Hospitalization)
  Sender: ACCORD
  Company Number: US-MLMSERVICE-20241210-PI285368-00200-1

PATIENT
  Age: 55 Year
  Sex: Female

DRUGS (1)
  1. LEVOTHYROXINE [Suspect]
     Active Substance: LEVOTHYROXINE
     Dosage: BOTTLE OF LEVOTHYROXINE (WHICH CONTAINED A 3-MONTH SUPPLY)
     Route: 048

REACTIONS (7)
  - Cardiac arrest [Recovered/Resolved]
  - Thyrotoxic crisis [Unknown]
  - Hyperthyroidism [Unknown]
  - Intentional overdose [Unknown]
  - Loss of consciousness [Unknown]
  - Haemorrhage [Unknown]
  - Ventricular fibrillation [Recovered/Resolved]
